FAERS Safety Report 10177788 (Version 1)
Quarter: 2014Q2

REPORT INFORMATION
  Report Type: Spontaneous
  Country: US (occurrence: US)
  Receive Date: 20140516
  Receipt Date: 20140516
  Transmission Date: 20141212
  Serious: No
  Sender: FDA-Public Use
  Company Number: US-SANOFI-AVENTIS-2013SA085241

PATIENT
  Age: 61 Year
  Sex: Female

DRUGS (2)
  1. APIDRA SOLOSTAR [Suspect]
     Indication: TYPE 1 DIABETES MELLITUS
     Route: 051
  2. SOLOSTAR [Concomitant]

REACTIONS (8)
  - Malaise [Unknown]
  - Ill-defined disorder [Unknown]
  - Pruritus [Unknown]
  - Skin disorder [Recovered/Resolved]
  - Skin lesion [Unknown]
  - Dizziness [Unknown]
  - Retching [Unknown]
  - Diarrhoea [Unknown]
